FAERS Safety Report 6794486-5 (Version None)
Quarter: 2010Q2

REPORT INFORMATION
  Report Type: 
  Country: None (occurrence: None)
  Receive Date: 20100625
  Receipt Date: 20100614
  Transmission Date: 20101027
  Serious: Yes (Other)
  Sender: FDA-Public Use
  Company Number: MX-PFIZER INC-2010074927

PATIENT
  Age: 19 Year
  Sex: Male
  Weight: 30 kg

DRUGS (6)
  1. VFEND [Suspect]
     Dosage: 200 MG, 1X/DAY
     Route: 042
     Dates: start: 20100325, end: 20100402
  2. AMIKACIN [Concomitant]
     Dosage: UNK
     Dates: start: 20100215, end: 20100222
  3. DIPIRONE [Concomitant]
     Dosage: UNK
     Dates: start: 20100322
  4. FLUCONAZOLE [Concomitant]
     Dosage: 300 MG, 2X/DAY
     Route: 048
     Dates: start: 20100316
  5. PARACETAMOL [Concomitant]
     Dosage: 500 MG, 4X/DAY
     Route: 042
     Dates: start: 20100310
  6. IMIPENEM [Concomitant]
     Dosage: UNK
     Dates: start: 20100320, end: 20100322

REACTIONS (7)
  - BRAIN OEDEMA [None]
  - CONVULSION [None]
  - DIPLOPIA [None]
  - HYPERHIDROSIS [None]
  - INTRACRANIAL PRESSURE INCREASED [None]
  - PHOTOPHOBIA [None]
  - VISION BLURRED [None]
